FAERS Safety Report 5505525-3 (Version None)
Quarter: 2007Q4

REPORT INFORMATION
  Report Type: 
  Country: None (occurrence: None)
  Receive Date: 20071102
  Receipt Date: 20071025
  Transmission Date: 20080405
  Serious: Yes (Hospitalization)
  Sender: FDA-Public Use
  Company Number: SE-SHR-SE-2007-040621

PATIENT
  Age: 22 Year
  Sex: Male

DRUGS (1)
  1. ULTRAVIST 300 [Suspect]
     Dosage: 135 ML, 1 DOSE
     Route: 042
     Dates: start: 20070917, end: 20070917

REACTIONS (5)
  - ANAPHYLACTIC SHOCK [None]
  - BLOOD PRESSURE DECREASED [None]
  - ERYTHEMA [None]
  - MUSCLE SPASMS [None]
  - PRURITUS [None]
